FAERS Safety Report 5587976-4 (Version None)
Quarter: 2008Q1

REPORT INFORMATION
  Report Type: 
  Country: None (occurrence: None)
  Receive Date: 20080111
  Receipt Date: 20080104
  Transmission Date: 20080703
  Serious: No
  Sender: FDA-Public Use
  Company Number: US-BAYER-200810510NA

PATIENT
  Age: 19 Year
  Sex: Female

DRUGS (1)
  1. YAZ [Suspect]
     Indication: DRUG USE FOR UNKNOWN INDICATION
     Route: 048
     Dates: start: 20060101, end: 20071201

REACTIONS (4)
  - CATARACT [None]
  - DRY EYE [None]
  - VISUAL DISTURBANCE [None]
  - VITREOUS FLOATERS [None]
